FAERS Safety Report 14080327 (Version 1)
Quarter: 2017Q4

REPORT INFORMATION
  Report Type: Spontaneous
  Country: US (occurrence: US)
  Receive Date: 20171012
  Receipt Date: 20171012
  Transmission Date: 20180321
  Serious: No
  Sender: FDA-Public Use
  Company Number: PHEH2017US033126

PATIENT

DRUGS (3)
  1. DOCETAXEL. [Suspect]
     Active Substance: DOCETAXEL
     Indication: BREAST CANCER
     Route: 065
     Dates: start: 201211
  2. DOCETAXEL. [Suspect]
     Active Substance: DOCETAXEL
     Indication: BREAST CANCER
     Route: 065
     Dates: start: 201211
  3. TAXOTERE [Suspect]
     Active Substance: DOCETAXEL
     Indication: BREAST CANCER
     Route: 065
     Dates: start: 201511

REACTIONS (9)
  - Alopecia [Not Recovered/Not Resolved]
  - Discomfort [Unknown]
  - Anhedonia [Unknown]
  - Asthenia [Unknown]
  - Emotional distress [Unknown]
  - Pain [Unknown]
  - Deformity [Not Recovered/Not Resolved]
  - Injury [Unknown]
  - Anxiety [Unknown]
